FAERS Safety Report 23867239 (Version 1)
Quarter: 2024Q2

REPORT INFORMATION
  Report Type: Spontaneous
  Country: GB (occurrence: GB)
  Receive Date: 20240517
  Receipt Date: 20240517
  Transmission Date: 20240715
  Serious: Yes (Other)
  Sender: FDA-Public Use
  Company Number: None

PATIENT
  Age: 65 Year
  Sex: Female
  Weight: 78 kg

DRUGS (2)
  1. ATORVASTATIN [Suspect]
     Active Substance: ATORVASTATIN
     Dosage: DURATION: 23 DAYS
     Route: 048
     Dates: start: 20240402, end: 20240425
  2. ATORVASTATIN [Suspect]
     Active Substance: ATORVASTATIN
     Dosage: TAKE ONE DAILY
     Route: 065
     Dates: start: 20231016

REACTIONS (2)
  - Gamma-glutamyltransferase increased [Recovering/Resolving]
  - Liver function test abnormal [Recovering/Resolving]

NARRATIVE: CASE EVENT DATE: 20240402
